FAERS Safety Report 8856421 (Version 1)
Quarter: 2012Q4

REPORT INFORMATION
  Report Type: Spontaneous
  Country: DE (occurrence: None)
  Receive Date: 20121019
  Receipt Date: 20121019
  Transmission Date: 20130627
  Serious: Yes (Congenital Anomaly, Other)
  Sender: FDA-Public Use
  Company Number: GER/GER/12/0026207

PATIENT
  Age: 28 Day
  Sex: Female
  Weight: 1.68 kg

DRUGS (6)
  1. METFORMIN (METFORMIN) [Suspect]
     Indication: DRUG USE FOR UNKNOWN INDICATION
     Route: 064
     Dates: start: 20090709, end: 20100126
  2. RAMIPRIL (RAMIPRIL) [Suspect]
     Indication: DRUG USE FOR UNKNOWN INDICATION
     Route: 064
     Dates: start: 20090709, end: 20100126
  3. METOPROLOL (METOPROLOL) [Concomitant]
  4. DOPEGYT (METHYLDOPA) [Concomitant]
  5. NOVORAPID (INSULIN ASPART) [Concomitant]
  6. PROTAPHANE (INSULIN HUMAN INJECTION, ISOPHANE) [Concomitant]

REACTIONS (13)
  - Maternal drugs affecting foetus [None]
  - Congenital aortic valve stenosis [None]
  - Congenital mitral valve incompetence [None]
  - Patent ductus arteriosus [None]
  - Atrial septal defect [None]
  - Bicuspid aortic valve [None]
  - Pulmonary hypertension [None]
  - Neonatal respiratory distress syndrome [None]
  - Caesarean section [None]
  - Premature baby [None]
  - Aortic valve incompetence [None]
  - Neonatal cardiac failure [None]
  - Urine output decreased [None]
